FAERS Safety Report 5688453-2 (Version None)
Quarter: 2008Q1

REPORT INFORMATION
  Report Type: 
  Country: None (occurrence: None)
  Receive Date: 20080331
  Receipt Date: 20080318
  Transmission Date: 20080703
  Serious: Yes (Other)
  Sender: FDA-Public Use
  Company Number: DE-BAYER-200815190GPV

PATIENT

DRUGS (1)
  1. FLUDARA [Suspect]

REACTIONS (6)
  - ANGIOEDEMA [None]
  - ERYTHEMA [None]
  - HYPERSENSITIVITY [None]
  - OEDEMA [None]
  - PYREXIA [None]
  - RASH [None]
